FAERS Safety Report 22340820 (Version 2)
Quarter: 2023Q2

REPORT INFORMATION
  Report Type: Spontaneous
  Country: US (occurrence: US)
  Receive Date: 20230518
  Receipt Date: 20230609
  Transmission Date: 20230722
  Serious: Yes (Hospitalization, Other)
  Sender: FDA-Public Use
  Company Number: US-BRISTOL-MYERS SQUIBB COMPANY-2023-067576

PATIENT
  Age: 73 Year
  Sex: Female

DRUGS (1)
  1. POMALYST [Suspect]
     Active Substance: POMALIDOMIDE
     Indication: Nephrogenic anaemia
     Dosage: TAKE 1 CAPSULE WHOLE BY MOUTH WITH WATER, 2 HRS AWAY FROM FOOD,
     Route: 048
     Dates: start: 20220902

REACTIONS (3)
  - Cardiac failure congestive [Recovered/Resolved]
  - Fluid retention [Recovered/Resolved]
  - Off label use [Unknown]
